FAERS Safety Report 8880598 (Version 2)
Quarter: 2013Q2

REPORT INFORMATION
  Report Type: Spontaneous
  Country: US (occurrence: US)
  Receive Date: 20121101
  Receipt Date: 20130521
  Transmission Date: 20140414
  Serious: Yes (Hospitalization)
  Sender: FDA-Public Use
  Company Number: US-BAYER-2012-113520

PATIENT
  Age: 28 Year
  Sex: Female
  Weight: 61.22 kg

DRUGS (16)
  1. YAZ [Suspect]
     Indication: CONTRACEPTION
     Dosage: UNK
     Dates: start: 2005, end: 2007
  2. YAZ [Suspect]
     Indication: CONTRACEPTION
     Dosage: UNK
     Dates: start: 2007, end: 20120212
  3. YASMIN [Suspect]
     Indication: CONTRACEPTION
     Dosage: UNK
     Dates: start: 2005, end: 2007
  4. YASMIN [Suspect]
     Indication: CONTRACEPTION
     Dosage: UNK
     Dates: start: 2007, end: 20120212
  5. OCELLA [Suspect]
     Indication: CONTRACEPTION
     Dosage: UNK
     Dates: start: 2005, end: 2007
  6. OCELLA [Suspect]
     Indication: CONTRACEPTION
     Dosage: UNK
     Dates: start: 2007, end: 20120212
  7. ADDERALL [Concomitant]
     Dosage: 10 MG, QD
     Route: 048
  8. MOTRIN [Concomitant]
     Indication: HEADACHE
     Dosage: 2 PILLS 1 [TIME] DAILY PRN
  9. VICODIN [Concomitant]
     Indication: PAIN
     Dosage: 1 TABLET PRN
  10. COLECALCIFEROL [Concomitant]
     Dosage: 1000 U, QD
     Route: 048
  11. FERROUS SULFATE [Concomitant]
     Dosage: 325 MG, QD
     Route: 048
  12. MULTIVITAMIN [Concomitant]
     Dosage: 1 TABLET, QD
     Route: 048
  13. TYLENOL [Concomitant]
  14. TRAMADOL [Concomitant]
     Dosage: 50 MG, QID
  15. ULTRAM [Concomitant]
  16. SENNA [Concomitant]

REACTIONS (17)
  - Intracranial venous sinus thrombosis [Recovering/Resolving]
  - Jugular vein thrombosis [Recovering/Resolving]
  - General physical health deterioration [Recovering/Resolving]
  - Injury [Recovering/Resolving]
  - Pain [Recovering/Resolving]
  - Panic attack [None]
  - Anxiety [None]
  - Headache [Recovering/Resolving]
  - Dizziness [Recovering/Resolving]
  - Hypoaesthesia [Recovering/Resolving]
  - Occipital neuralgia [Recovering/Resolving]
  - Migraine [Recovering/Resolving]
  - Visual impairment [Recovering/Resolving]
  - Mydriasis [Recovering/Resolving]
  - Emotional distress [None]
  - Anxiety [None]
  - Pain [None]
